FAERS Safety Report 10097163 (Version 2)
Quarter: 2014Q2

REPORT INFORMATION
  Report Type: Spontaneous
  Country: US (occurrence: US)
  Receive Date: 20140422
  Receipt Date: 20140423
  Transmission Date: 20141212
  Serious: Yes (Other)
  Sender: FDA-Public Use
  Company Number: US-TEVA-477316USA

PATIENT
  Age: 47 Year
  Sex: Female
  Weight: 81.72 kg

DRUGS (2)
  1. COPAXONE [Suspect]
  2. ESCITALOPRAM OXALATE [Concomitant]
     Indication: ANXIETY
     Dosage: 10 MILLIGRAM DAILY;

REACTIONS (13)
  - Throat tightness [Recovered/Resolved]
  - Hypersensitivity [Unknown]
  - Palpitations [Unknown]
  - Dizziness [Unknown]
  - Accidental exposure to product [Unknown]
  - Dysgeusia [Not Recovered/Not Resolved]
  - Dysphonia [Not Recovered/Not Resolved]
  - Vomiting [Unknown]
  - Retching [Recovered/Resolved]
  - Salivary hypersecretion [Not Recovered/Not Resolved]
  - Nervousness [Recovered/Resolved]
  - Secretion discharge [Unknown]
  - Sleep disorder [Unknown]
